FAERS Safety Report 13938593 (Version 1)
Quarter: 2017Q3

REPORT INFORMATION
  Report Type: Spontaneous
  Country: US (occurrence: US)
  Receive Date: 20170905
  Receipt Date: 20170905
  Transmission Date: 20171127
  Serious: Yes (Other)
  Sender: FDA-Public Use
  Company Number: None

PATIENT
  Age: 59 Year
  Sex: Female
  Weight: 72 kg

DRUGS (7)
  1. BUTRANS [Suspect]
     Active Substance: BUPRENORPHINE
     Indication: PAIN IN EXTREMITY
     Dosage: ?          OTHER STRENGTH:MCG/HOUR;QUANTITY:4 PATCH(ES);OTHER FREQUENCY:7 DAYS;?
     Route: 062
  2. PREMARIN [Concomitant]
     Active Substance: ESTROGENS, CONJUGATED
  3. BUTRANS [Suspect]
     Active Substance: BUPRENORPHINE
     Indication: BACK PAIN
     Dosage: ?          OTHER STRENGTH:MCG/HOUR;QUANTITY:4 PATCH(ES);OTHER FREQUENCY:7 DAYS;?
     Route: 062
  4. XANAX [Concomitant]
     Active Substance: ALPRAZOLAM
  5. MULTI VITAMINS WOMEN 50+ [Concomitant]
  6. URISTAT [Concomitant]
     Active Substance: PHENAZOPYRIDINE HYDROCHLORIDE
  7. AMITRIPTYLINE [Concomitant]
     Active Substance: AMITRIPTYLINE

REACTIONS (5)
  - Rubber sensitivity [None]
  - Inflammation [None]
  - Rash erythematous [None]
  - Rash pruritic [None]
  - Rash papular [None]

NARRATIVE: CASE EVENT DATE: 20170731
